FAERS Safety Report 23258473 (Version 1)
Quarter: 2023Q4

REPORT INFORMATION
  Report Type: Spontaneous
  Country: US (occurrence: None)
  Receive Date: 20231202
  Receipt Date: 20231202
  Transmission Date: 20240110
  Serious: Yes (Hospitalization)
  Sender: FDA-Public Use
  Company Number: None

PATIENT
  Age: 87 Year
  Sex: Male
  Weight: 117.3 kg

DRUGS (3)
  1. FLUOROURACIL [Suspect]
     Active Substance: FLUOROURACIL
     Dates: end: 20231109
  2. ONIVYDE [Suspect]
     Active Substance: IRINOTECAN HYDROCHLORIDE
     Dates: end: 20231109
  3. LEUCOVORIN CALCIUM [Suspect]
     Active Substance: LEUCOVORIN CALCIUM
     Dates: end: 20231109

REACTIONS (11)
  - Fall [None]
  - Fatigue [None]
  - Asthenia [None]
  - Acute respiratory failure [None]
  - Respiratory syncytial virus infection [None]
  - Pulmonary embolism [None]
  - Bronchiolitis [None]
  - Hypokalaemia [None]
  - Hypocalcaemia [None]
  - Therapy interrupted [None]
  - Toxicity to various agents [None]

NARRATIVE: CASE EVENT DATE: 20231123
